FAERS Safety Report 12253351 (Version 2)
Quarter: 2016Q2

REPORT INFORMATION
  Report Type: Spontaneous
  Country: US (occurrence: US)
  Receive Date: 20160411
  Receipt Date: 20160520
  Transmission Date: 20160815
  Serious: No
  Sender: FDA-Public Use
  Company Number: US-PFIZER INC-2016157992

PATIENT
  Age: 67 Year
  Sex: Male
  Weight: 47.63 kg

DRUGS (2)
  1. BAYER ASPIRIN [Concomitant]
     Active Substance: ASPIRIN
     Indication: HEART RATE IRREGULAR
     Dosage: 81 MG, EVERY OTHER DAY
     Dates: start: 201602
  2. NITROSTAT [Suspect]
     Active Substance: NITROGLYCERIN
     Indication: CHEST PAIN
     Dosage: 0.4 MG, UNDER THE TONGUE WHEN NEEDED
     Route: 048

REACTIONS (3)
  - Product quality issue [Unknown]
  - Poor quality drug administered [Unknown]
  - Drug ineffective [Unknown]

NARRATIVE: CASE EVENT DATE: 20160312
